FAERS Safety Report 12374128 (Version 2)
Quarter: 2016Q3

REPORT INFORMATION
  Report Type: Report from Study
  Country: GB (occurrence: GB)
  Receive Date: 20160517
  Receipt Date: 20160803
  Transmission Date: 20161109
  Serious: Yes (Life-Threatening, Hospitalization)
  Sender: FDA-Public Use
  Company Number: GB-BEH-2016062450

PATIENT
  Age: 22 Year
  Sex: Male

DRUGS (4)
  1. BLINDED PLACEBO [Suspect]
     Active Substance: INVESTIGATIONAL PRODUCT
     Indication: INJURY
  2. RIASTAP [Suspect]
     Active Substance: FIBRINOGEN HUMAN
     Indication: INJURY
  3. BLINDED PLACEBO [Suspect]
     Active Substance: INVESTIGATIONAL PRODUCT
     Indication: TRAUMATIC HAEMORRHAGE
     Route: 065
     Dates: start: 20160331
  4. RIASTAP [Suspect]
     Active Substance: FIBRINOGEN HUMAN
     Indication: TRAUMATIC HAEMORRHAGE
     Route: 065
     Dates: start: 20160331

REACTIONS (10)
  - Haemoglobin decreased [Recovered/Resolved with Sequelae]
  - Pneumonia [Recovered/Resolved]
  - Pyrexia [Recovered/Resolved]
  - Subcutaneous emphysema [Not Recovered/Not Resolved]
  - Intracranial pressure increased [Recovered/Resolved with Sequelae]
  - Cerebral haematoma [Recovered/Resolved with Sequelae]
  - Pulmonary sepsis [Recovered/Resolved]
  - Brain oedema [Recovered/Resolved with Sequelae]
  - Subgaleal haematoma [Not Recovered/Not Resolved]
  - Pneumothorax [Recovered/Resolved]

NARRATIVE: CASE EVENT DATE: 20160402
